FAERS Safety Report 9180598 (Version 2)
Quarter: 2013Q2

REPORT INFORMATION
  Report Type: Spontaneous
  Country: CZ (occurrence: None)
  Receive Date: 20130320
  Receipt Date: 20130531
  Transmission Date: 20140414
  Serious: Yes (Other)
  Sender: FDA-Public Use
  Company Number: 2013000046

PATIENT
  Age: 46 Year
  Sex: Male
  Weight: 92 kg

DRUGS (2)
  1. ACEON (PERINDOPRIL ERBUMINE) [Suspect]
     Indication: PRODUCT USED FOR UNKNOWN INDICATION
     Route: 048
  2. LORISTA [Suspect]
     Route: 048
     Dates: start: 20100325, end: 201209

REACTIONS (2)
  - Hepatic cirrhosis [None]
  - Hepatic fibrosis [None]
